FAERS Safety Report 5118582-3 (Version None)
Quarter: 2006Q3

REPORT INFORMATION
  Report Type: 
  Country: None (occurrence: None)
  Receive Date: 20060927
  Receipt Date: 20060919
  Transmission Date: 20061208
  Serious: Yes (Hospitalization)
  Sender: FDA-Public Use
  Company Number: TPA2006A01446

PATIENT
  Age: 70 Year
  Sex: Male
  Weight: 76.6579 kg

DRUGS (16)
  1. ROZEREM [Suspect]
     Indication: INSOMNIA
     Dosage: 8 MG, QHS, PER ORAL
     Route: 048
     Dates: start: 20050714, end: 20060720
  2. ROZEREM [Suspect]
     Indication: INSOMNIA
     Dosage: 8 MG, QHS, PER ORAL
     Route: 048
     Dates: start: 20060821
  3. LUNESTA [Suspect]
     Indication: INSOMNIA
     Dosage: PER ORAL
     Route: 048
     Dates: start: 20060721, end: 20060723
  4. GLYBURIDE [Concomitant]
  5. METOCLOPRAMIDE [Concomitant]
  6. CRESTOR [Concomitant]
  7. NAMENDA [Concomitant]
  8. RAZADYNE [Concomitant]
  9. PLAVIX [Concomitant]
  10. NEXIUM [Concomitant]
  11. ALTACE [Concomitant]
  12. CENTRUM SILVER (ASCORIC ACID, TOCOPHERYL ACETATE, VITAMIN  NOS, MINERA [Concomitant]
  13. ASPIRIN [Concomitant]
  14. ACETAMINOPHEN [Concomitant]
  15. OCUVITE PRESSER VISION (ASCORBIC ACID, TOCOPHEROL, RETINOL) [Concomitant]
  16. SEDAPAO (BUTALBITAL PARACETAMOL) [Concomitant]

REACTIONS (7)
  - AGGRESSION [None]
  - AGITATION [None]
  - BLOOD GLUCOSE INCREASED [None]
  - CONFUSIONAL STATE [None]
  - INCOHERENT [None]
  - PNEUMONIA [None]
  - RESTLESSNESS [None]
